FAERS Safety Report 7598503-4 (Version None)
Quarter: 2011Q3

REPORT INFORMATION
  Report Type: 
  Country: None (occurrence: None)
  Receive Date: 20110708
  Receipt Date: 20110629
  Transmission Date: 20111222
  Serious: Yes (Hospitalization)
  Sender: FDA-Public Use
  Company Number: BR-ASTRAZENECA-2011SE34075

PATIENT
  Age: 73 Year
  Sex: Female
  Weight: 105 kg

DRUGS (4)
  1. CRESTOR [Suspect]
     Indication: HYPERCHOLESTEROLAEMIA
     Route: 048
     Dates: start: 20080101
  2. BENICAR [Concomitant]
     Indication: HYPERTENSION
     Route: 048
     Dates: start: 20070101
  3. LERCANIDIPINE [Concomitant]
     Indication: HYPERTENSION
     Route: 048
     Dates: start: 20070101
  4. METOPROLOL SUCCINATE [Suspect]
     Indication: ARRHYTHMIA
     Route: 048
     Dates: start: 20080101

REACTIONS (10)
  - TENDON RUPTURE [None]
  - BLOOD GLUCOSE INCREASED [None]
  - WEIGHT DECREASED [None]
  - TACHYCARDIA [None]
  - CHOLELITHIASIS [None]
  - ANXIETY [None]
  - BRADYCARDIA [None]
  - CHOLELITHOTOMY [None]
  - UMBILICAL HERNIA [None]
  - MUSCLE ATROPHY [None]
